FAERS Safety Report 5318789-6 (Version None)
Quarter: 2007Q2

REPORT INFORMATION
  Report Type: 
  Country: None (occurrence: None)
  Receive Date: 20070504
  Receipt Date: 20070504
  Transmission Date: 20071010
  Serious: Yes (Life-Threatening, Hospitalization, Other)
  Sender: FDA-Public Use
  Company Number: None

PATIENT
  Age: 68 Year
  Sex: Male
  Weight: 113.3993 kg

DRUGS (1)
  1. NITROFURANTOIN (MONOHYDRATE/MACROCRYSTALS) [Suspect]
     Indication: CYSTITIS
     Dosage: 100MG TWICE A DAY PO
     Route: 048
     Dates: start: 20070414, end: 20070417

REACTIONS (16)
  - ABASIA [None]
  - ANAEMIA [None]
  - ASTHENIA [None]
  - BLOOD CREATININE INCREASED [None]
  - BLOOD GLUCOSE INCREASED [None]
  - BLOOD PRESSURE INCREASED [None]
  - CARDIAC DISORDER [None]
  - CHROMATURIA [None]
  - DYSPNOEA [None]
  - ELECTROLYTE IMBALANCE [None]
  - LIPIDS INCREASED [None]
  - NEUROPATHY PERIPHERAL [None]
  - PULMONARY FIBROSIS [None]
  - RENAL IMPAIRMENT [None]
  - VISUAL ACUITY REDUCED [None]
  - YELLOW SKIN [None]
